FAERS Safety Report 16997053 (Version 4)
Quarter: 2019Q4

REPORT INFORMATION
  Report Type: Report from Study
  Country: US (occurrence: US)
  Receive Date: 20191106
  Receipt Date: 20191218
  Transmission Date: 20200122
  Serious: Yes (Hospitalization, Other)
  Sender: FDA-Public Use
  Company Number: US-ROCHE-2453187

PATIENT
  Age: 75 Year
  Sex: Male
  Weight: 113 kg

DRUGS (13)
  1. ATORVASTIN [Concomitant]
     Active Substance: ATORVASTATIN
     Route: 065
  2. ATEZOLIZUMAB. [Suspect]
     Active Substance: ATEZOLIZUMAB
     Indication: PROSTATE CANCER METASTATIC
     Route: 042
     Dates: start: 20190701, end: 20191104
  3. BICALUTAMIDE. [Concomitant]
     Active Substance: BICALUTAMIDE
     Route: 048
  4. HYDROCHLOROTHIAZIDE. [Concomitant]
     Active Substance: HYDROCHLOROTHIAZIDE
     Route: 065
  5. KETOROLAC [Concomitant]
     Active Substance: KETOROLAC TROMETHAMINE
     Route: 065
  6. SIPULEUCEL-T [Suspect]
     Active Substance: SIPULEUCEL-T
     Route: 042
  7. OFLOXACIN. [Concomitant]
     Active Substance: OFLOXACIN
     Route: 065
  8. SIPULEUCEL-T [Suspect]
     Active Substance: SIPULEUCEL-T
     Indication: PROSTATE CANCER METASTATIC
     Route: 042
  9. HUMULIN N [Concomitant]
     Active Substance: INSULIN HUMAN
     Route: 058
  10. LISINOPRIL. [Concomitant]
     Active Substance: LISINOPRIL
     Route: 065
  11. CLOPIDOGREL [Concomitant]
     Active Substance: CLOPIDOGREL BISULFATE
     Route: 065
  12. LISINOPRIL AND HYDROCHLOROTHIAZIDE [Concomitant]
     Active Substance: HYDROCHLOROTHIAZIDE\LISINOPRIL
  13. FLUZONE [INFLUENZA VACCINE] [Concomitant]
     Route: 030

REACTIONS (6)
  - Cholecystitis acute [Unknown]
  - Tachycardia [Unknown]
  - Abdominal pain [Unknown]
  - Wound infection [Recovered/Resolved]
  - Syncope [Unknown]
  - Pyrexia [Unknown]

NARRATIVE: CASE EVENT DATE: 20191011
